FAERS Safety Report 21536978 (Version 1)
Quarter: 2022Q4

REPORT INFORMATION
  Report Type: Spontaneous
  Country: JP (occurrence: JP)
  Receive Date: 20221101
  Receipt Date: 20221101
  Transmission Date: 20230113
  Serious: Yes (Hospitalization, Other)
  Sender: FDA-Public Use
  Company Number: JP-ferring-EVA202201262FERRINGPH

PATIENT

DRUGS (1)
  1. DESMOPRESSIN ACETATE [Suspect]
     Active Substance: DESMOPRESSIN ACETATE
     Indication: Product used for unknown indication
     Dosage: 120 UG
     Route: 065

REACTIONS (5)
  - Rehabilitation therapy [Unknown]
  - Renal impairment [Unknown]
  - Surgery [Unknown]
  - Contraindicated product administered [Unknown]
  - Labelled drug-disease interaction medication error [Unknown]
